FAERS Safety Report 5371510-8 (Version None)
Quarter: 2007Q2

REPORT INFORMATION
  Report Type: 
  Country: None (occurrence: None)
  Receive Date: 20070615
  Receipt Date: 20070419
  Transmission Date: 20071010
  Serious: Yes (Other)
  Sender: FDA-Public Use
  Company Number: 200617434US

PATIENT
  Age: 62 Year
  Sex: Female

DRUGS (5)
  1. LANTUS [Suspect]
     Indication: DIABETES MELLITUS INSULIN-DEPENDENT
     Dosage: 50 U/DAY;
  2. OPTICLIK [Suspect]
  3. PIOGLITAZONE [Concomitant]
  4. AMARYL [Concomitant]
  5. MANY OTHER MEDICATIONS [Concomitant]

REACTIONS (3)
  - BLOOD GLUCOSE INCREASED [None]
  - HYPERGLYCAEMIA [None]
  - VISUAL DISTURBANCE [None]
